FAERS Safety Report 10478883 (Version 2)
Quarter: 2014Q4

REPORT INFORMATION
  Report Type: Spontaneous
  Country: US (occurrence: US)
  Receive Date: 20140926
  Receipt Date: 20141029
  Transmission Date: 20150528
  Serious: Yes (Other)
  Sender: FDA-Public Use
  Company Number: US-LUNDBECK-DKLU1103792

PATIENT
  Sex: Female
  Weight: 6 kg

DRUGS (6)
  1. SABRIL [Suspect]
     Active Substance: VIGABATRIN
     Dosage: WEAN DOWN
     Route: 048
     Dates: start: 201409
  2. ONFI [Suspect]
     Active Substance: CLOBAZAM
     Indication: SEIZURE
     Dates: start: 20140826
  3. SABRIL [Suspect]
     Active Substance: VIGABATRIN
     Dates: start: 20140918
  4. SABRIL [Suspect]
     Active Substance: VIGABATRIN
     Indication: INFANTILE SPASMS
     Route: 048
     Dates: start: 20140627
  5. PREDNISOLONE. [Concomitant]
     Active Substance: PREDNISOLONE
     Indication: PRODUCT USED FOR UNKNOWN INDICATION
     Dates: start: 20140529
  6. TOPAMAX [Concomitant]
     Active Substance: TOPIRAMATE
     Indication: PRODUCT USED FOR UNKNOWN INDICATION
     Dates: start: 20140522, end: 201407

REACTIONS (3)
  - Infantile spasms [Recovering/Resolving]
  - Drug withdrawal convulsions [Recovering/Resolving]
  - Seizure [Recovering/Resolving]
